FAERS Safety Report 10435205 (Version 3)
Quarter: 2017Q1

REPORT INFORMATION
  Report Type: Report from Study
  Country: JP (occurrence: JP)
  Receive Date: 20140907
  Receipt Date: 20170331
  Transmission Date: 20170428
  Serious: Yes (Hospitalization)
  Sender: FDA-Public Use
  Company Number: PHHY2013JP162161

PATIENT
  Age: 2 Year
  Sex: Male

DRUGS (4)
  1. ACZ885 [Suspect]
     Active Substance: CANAKINUMAB
     Indication: MUCKLE-WELLS SYNDROME
     Dosage: 2 MG/KG, QD
     Route: 058
     Dates: start: 20130530
  2. ACZ885 [Suspect]
     Active Substance: CANAKINUMAB
     Dosage: 6 MG/KG, UNK
     Route: 058
  3. AMPICILLIN+SULBACTAM [Concomitant]
     Active Substance: AMPICILLIN SODIUM\SULBACTAM SODIUM
     Indication: LYMPHADENITIS BACTERIAL
     Dosage: UNK
     Route: 065
  4. ACZ885 [Suspect]
     Active Substance: CANAKINUMAB
     Dosage: 4 MG/KG, UNK
     Route: 058

REACTIONS (4)
  - C-reactive protein increased [Recovered/Resolved]
  - Serum amyloid A protein increased [Recovered/Resolved]
  - Inflammation [Recovered/Resolved]
  - Lymphadenitis bacterial [Unknown]

NARRATIVE: CASE EVENT DATE: 201306
